FAERS Safety Report 9059341 (Version 2)
Quarter: 2013Q1

REPORT INFORMATION
  Report Type: Spontaneous
  Country: RU (occurrence: RU)
  Receive Date: 20130211
  Receipt Date: 20130305
  Transmission Date: 20140127
  Serious: Yes (Life-Threatening, Other)
  Sender: FDA-Public Use
  Company Number: RU-ABBOTT-13P-251-1046471-00

PATIENT
  Age: 48 None
  Sex: Female
  Weight: 78 kg

DRUGS (25)
  1. SEVORANE [Suspect]
     Indication: INDUCTION AND MAINTENANCE OF ANAESTHESIA
     Dosage: TIDAL VOLUME OF 440 ML, MINUTE VOLUME VENTILATION
     Dates: start: 20110710, end: 20110710
  2. SEVORANE [Suspect]
     Indication: INDUCTION AND MAINTENANCE OF ANAESTHESIA
  3. DORMICUM [Concomitant]
     Indication: PRODUCT USED FOR UNKNOWN INDICATION
     Dates: start: 2010, end: 2010
  4. PHENTANYL [Concomitant]
     Indication: ANALGESIC THERAPY
     Dosage: AMPOULES OF 0.1, TOTAL 9ML
     Route: 042
     Dates: start: 20120710, end: 20120710
  5. PROPOFOL [Concomitant]
     Indication: INDUCTION OF ANAESTHESIA
     Route: 042
     Dates: start: 20120710, end: 20120710
  6. ATROPINE [Concomitant]
     Indication: PREMEDICATION
     Route: 042
     Dates: start: 20120710, end: 20120710
  7. PROZERIN [Concomitant]
     Indication: PREMEDICATION
     Route: 042
     Dates: start: 20120710, end: 20120710
  8. DEXCON [Concomitant]
     Indication: PREMEDICATION
     Route: 042
     Dates: start: 20120710, end: 20120710
  9. ARDUAN [Concomitant]
     Indication: HYPOTONIA
     Route: 042
     Dates: start: 20120710, end: 20120710
  10. CLOPHELINI [Concomitant]
     Indication: PRODUCT USED FOR UNKNOWN INDICATION
     Dosage: 0.01X0.3
     Route: 042
     Dates: start: 20120710, end: 20120710
  11. HYPERHAES [Concomitant]
     Indication: SURGERY
  12. STEROFUNDIN [Concomitant]
     Indication: SURGERY
  13. KORVALOL [Concomitant]
     Indication: PROPHYLAXIS
     Route: 048
     Dates: start: 20120710, end: 20120710
  14. QUAMATEL [Concomitant]
     Indication: POSTOPERATIVE CARE
  15. QUAMATEL [Concomitant]
     Indication: PROPHYLAXIS
  16. FENAZEPAM [Concomitant]
     Indication: PROPHYLAXIS
     Route: 048
     Dates: start: 20120710, end: 20120710
  17. LASIX [Concomitant]
     Indication: POSTOPERATIVE CARE
  18. LASIX [Concomitant]
     Indication: PROPHYLAXIS
  19. DEXAMETHASONE [Concomitant]
     Indication: POSTOPERATIVE CARE
  20. DEXAMETHASONE [Concomitant]
     Indication: PROPHYLAXIS
  21. KETONAL [Concomitant]
     Indication: POSTOPERATIVE CARE
  22. KETONAL [Concomitant]
     Indication: PROPHYLAXIS
  23. CEFTRIAXONE [Concomitant]
     Indication: PROPHYLAXIS
     Route: 042
     Dates: start: 20120710
  24. FRAGMIN [Concomitant]
     Indication: THROMBOSIS PROPHYLAXIS
     Dates: start: 20120717, end: 20120725
  25. ENTEROALIMENTATION [Concomitant]
     Indication: PRODUCT USED FOR UNKNOWN INDICATION
     Dates: start: 20120712, end: 20120725

REACTIONS (13)
  - Multi-organ failure [Unknown]
  - Metastases to liver [Unknown]
  - Hepatitis acute [Unknown]
  - Asthenia [Unknown]
  - General physical health deterioration [Unknown]
  - Alanine aminotransferase increased [Unknown]
  - Aspartate aminotransferase increased [Unknown]
  - Blood creatinine increased [Unknown]
  - Blood urea increased [Unknown]
  - Hypotension [Unknown]
  - Tachycardia [Unknown]
  - Cholecystitis [Unknown]
  - Pancreatitis [Unknown]
